FAERS Safety Report 9994878 (Version 1)
Quarter: 2014Q1

REPORT INFORMATION
  Report Type: Spontaneous
  Country: US (occurrence: None)
  Receive Date: 20140307
  Receipt Date: 20140307
  Transmission Date: 20141002
  Serious: Yes (Other)
  Sender: FDA-Public Use
  Company Number: None

PATIENT
  Age: 52 Year
  Sex: Male
  Weight: 104.33 kg

DRUGS (2)
  1. PREDNISONE [Suspect]
     Dosage: 40MG DAY 1+2 20 DAY 3+4 10DAY5
     Route: 048
     Dates: start: 20140219, end: 20140223
  2. PREDNISONE [Suspect]
     Indication: NERVE COMPRESSION
     Dosage: 40MG DAY 1+2 20 DAY 3+4 10DAY5
     Route: 048
     Dates: start: 20140219, end: 20140223

REACTIONS (3)
  - Hiccups [None]
  - Tendonitis [None]
  - Similar reaction on previous exposure to drug [None]
